FAERS Safety Report 4351227-9 (Version None)
Quarter: 2004Q2

REPORT INFORMATION
  Report Type: 
  Country: None (occurrence: None)
  Receive Date: 20040430
  Receipt Date: 20040430
  Transmission Date: 20050107
  Serious: Yes (Life-Threatening, Hospitalization)
  Sender: FDA-Public Use
  Company Number: None

PATIENT
  Sex: Female
  Weight: 81.6475 kg

DRUGS (1)
  1. TOPAMAX [Suspect]
     Indication: CONVULSION
     Dosage: 100 MG DAILY (ESTIMATE)
     Dates: start: 20040101

REACTIONS (6)
  - ANOREXIA [None]
  - GRAND MAL CONVULSION [None]
  - INSOMNIA [None]
  - MENTAL DISORDER [None]
  - PALPITATIONS [None]
  - SPEECH DISORDER [None]
